FAERS Safety Report 7330342-1 (Version None)
Quarter: 2011Q1

REPORT INFORMATION
  Report Type: 
  Country: None (occurrence: None)
  Receive Date: 20110304
  Receipt Date: 20110222
  Transmission Date: 20110831
  Serious: Yes (Other)
  Sender: FDA-Public Use
  Company Number: US-BIOGENIDEC-2011BI002389

PATIENT
  Age: 45 Year
  Sex: Female

DRUGS (3)
  1. LEXAPRO [Concomitant]
     Indication: PRODUCT USED FOR UNKNOWN INDICATION
  2. TYSABRI [Suspect]
     Indication: MULTIPLE SCLEROSIS
     Route: 042
     Dates: start: 20091007
  3. CYMBALTA [Concomitant]
     Indication: PRODUCT USED FOR UNKNOWN INDICATION

REACTIONS (10)
  - CONVULSION [None]
  - CONTUSION [None]
  - LACERATION [None]
  - RIB FRACTURE [None]
  - JOINT INJURY [None]
  - HEADACHE [None]
  - MASS [None]
  - ARTHRALGIA [None]
  - FALL [None]
  - VEIN DISORDER [None]
